FAERS Safety Report 8508903-3 (Version None)
Quarter: 2012Q3

REPORT INFORMATION
  Report Type: 
  Country: None (occurrence: None)
  Receive Date: 20120713
  Receipt Date: 20120705
  Transmission Date: 20120928
  Serious: Yes (Hospitalization)
  Sender: FDA-Public Use
  Company Number: US-CELGENEUS-163-21880-12070588

PATIENT
  Sex: Male

DRUGS (5)
  1. COUMADIN [Concomitant]
     Dosage: .5 MILLIGRAM
     Route: 048
     Dates: start: 20100101
  2. MECLIZINE [Concomitant]
     Dosage: 28 MILLIGRAM
     Route: 048
     Dates: start: 20090101
  3. REVLIMID [Suspect]
     Indication: MULTIPLE MYELOMA
     Dosage: 5 MILLIGRAM
     Route: 048
     Dates: start: 20111004
  4. TERAZOZIN [Concomitant]
     Dosage: 10 MILLIGRAM
     Route: 048
     Dates: start: 20090101
  5. COLACE [Concomitant]
     Dosage: 1
     Route: 048
     Dates: start: 20090101

REACTIONS (1)
  - PROTHROMBIN TIME PROLONGED [None]
